FAERS Safety Report 6209529-7 (Version None)
Quarter: 2009Q2

REPORT INFORMATION
  Report Type: 
  Country: None (occurrence: None)
  Receive Date: 20090527
  Receipt Date: 20090512
  Transmission Date: 20091009
  Serious: Yes (Other)
  Sender: FDA-Public Use
  Company Number: 2009S1008496

PATIENT
  Age: 69 Year
  Sex: Female

DRUGS (4)
  1. TAMOXIFEN CITRATE [Suspect]
     Indication: DRUG USE FOR UNKNOWN INDICATION
     Dosage: 20 MG;
     Dates: start: 20080901, end: 20090301
  2. NITRAZEPAM [Concomitant]
  3. OXAZEPAM [Concomitant]
  4. ALENDRONATE SODIUM [Concomitant]

REACTIONS (2)
  - SOFT TISSUE INFLAMMATION [None]
  - VULVAL DISORDER [None]
